FAERS Safety Report 5366329-8 (Version None)
Quarter: 2007Q2

REPORT INFORMATION
  Report Type: 
  Country: None (occurrence: None)
  Receive Date: 20070620
  Receipt Date: 20070620
  Transmission Date: 20071010
  Serious: Yes (Other)
  Sender: FDA-Public Use
  Company Number: None

PATIENT
  Sex: Male
  Weight: 83.9154 kg

DRUGS (4)
  1. FLUOROURACIL [Suspect]
     Indication: COLON CANCER STAGE II
     Dosage: 1000MG WEEKLY IV
     Route: 042
     Dates: start: 20070412, end: 20070509
  2. LEUCOVORIN CALCIUM [Suspect]
     Indication: COLON CANCER STAGE II
     Dosage: 1000MG WEEKLY IV
     Route: 042
     Dates: start: 20070412, end: 20070509
  3. OXALIPLATIN [Concomitant]
  4. CALCIUM CHLORIDE [Concomitant]

REACTIONS (2)
  - DRUG HYPERSENSITIVITY [None]
  - DRUG INEFFECTIVE [None]
